FAERS Safety Report 9559704 (Version 1)
Quarter: 2013Q3

REPORT INFORMATION
  Report Type: Spontaneous
  Country: US (occurrence: None)
  Receive Date: 20130906
  Receipt Date: 20130906
  Transmission Date: 20140515
  Serious: Yes (Other)
  Sender: FDA-Public Use
  Company Number: 163-POMAL-13080816

PATIENT
  Age: 65 Year
  Sex: Female
  Weight: 47.2 kg

DRUGS (9)
  1. POMALYST (POMALIDOMIDE) (4 MILLIGRAM, CAPSULES) [Suspect]
     Indication: PLASMA CELL MYELOMA
     Dosage: 4 MG, 21 IN 28 D, PO
     Route: 048
     Dates: start: 20130710, end: 20130723
  2. AMLODIPINE (AMLODIPINE) [Concomitant]
  3. CLOBETASOL (CLOBETASOL) [Concomitant]
  4. DEXAMETHASONE (DEXAMETHASONE) [Concomitant]
  5. FISH OIL (FISH OIL) [Concomitant]
  6. LEVOTHYROXINE (LEVOTHYROXINE) [Concomitant]
  7. METOPROLOL SUCCINATE (METOPROLOL SUCCINATE) [Concomitant]
  8. QUINAPRIL (QUINAPRIL) [Concomitant]
  9. SIMVASTATIN (SIMVASTATIN) [Concomitant]

REACTIONS (1)
  - Anaemia [None]
